FAERS Safety Report 7788687-7 (Version None)
Quarter: 2011Q3

REPORT INFORMATION
  Report Type: 
  Country: None (occurrence: None)
  Receive Date: 20110930
  Receipt Date: 20101001
  Transmission Date: 20111222
  Serious: No
  Sender: FDA-Public Use
  Company Number: US-VIIV HEALTHCARE LIMITED-A0884506A

PATIENT
  Age: 54 Year
  Sex: Female

DRUGS (10)
  1. NEXIUM [Concomitant]
  2. EPZICOM [Suspect]
     Indication: HIV INFECTION
     Dosage: 1TAB PER DAY
     Route: 048
     Dates: start: 20100902
  3. LISINOPRIL [Concomitant]
  4. TOPAMAX [Concomitant]
  5. DETROL [Concomitant]
  6. KEPPRA [Concomitant]
  7. UNKNOWN MEDICATION [Concomitant]
  8. LOPID [Concomitant]
  9. LAMICTAL [Concomitant]
  10. PRAVASTATIN [Concomitant]

REACTIONS (7)
  - VOMITING [None]
  - DIZZINESS [None]
  - BONE PAIN [None]
  - INSOMNIA [None]
  - CHEST PAIN [None]
  - DIARRHOEA [None]
  - NAUSEA [None]
